FAERS Safety Report 21672366 (Version 2)
Quarter: 2022Q4

REPORT INFORMATION
  Report Type: Report from Study
  Country: US (occurrence: US)
  Receive Date: 20221202
  Receipt Date: 20221206
  Transmission Date: 20230113
  Serious: Yes (Other)
  Sender: FDA-Public Use
  Company Number: US-ABBVIE-4220327

PATIENT
  Sex: Male

DRUGS (1)
  1. RINVOQ [Suspect]
     Active Substance: UPADACITINIB
     Indication: Rheumatoid arthritis
     Dosage: FORM STRENGTH: 15 MILLIGRAM
     Route: 048

REACTIONS (6)
  - Tendon rupture [Unknown]
  - Procedural pain [Unknown]
  - Rheumatoid arthritis [Unknown]
  - Foot deformity [Unknown]
  - Surgery [Unknown]
  - Finger deformity [Unknown]

NARRATIVE: CASE EVENT DATE: 20220101
